FAERS Safety Report 6980493-6 (Version None)
Quarter: 2010Q3

REPORT INFORMATION
  Report Type: 
  Country: None (occurrence: None)
  Receive Date: 20100914
  Receipt Date: 20100901
  Transmission Date: 20110219
  Serious: Yes (Other)
  Sender: FDA-Public Use
  Company Number: PHHY2010JP58504

PATIENT
  Age: 53 Year
  Sex: Female

DRUGS (2)
  1. CYCLOSPORINE [Suspect]
     Indication: MYASTHENIA GRAVIS
  2. TACROLIMUS [Concomitant]
     Indication: MYASTHENIA GRAVIS
     Dosage: 3MG

REACTIONS (2)
  - GINGIVAL HYPERPLASIA [None]
  - PERIODONTITIS [None]
